FAERS Safety Report 4997749-9 (Version None)
Quarter: 2006Q2

REPORT INFORMATION
  Report Type: 
  Country: None (occurrence: None)
  Receive Date: 20060510
  Receipt Date: 20060427
  Transmission Date: 20061013
  Serious: Yes (Hospitalization)
  Sender: FDA-Public Use
  Company Number: PHBS2006JP06381

PATIENT
  Age: 33 Year
  Sex: Male

DRUGS (2)
  1. TEGRETOL [Suspect]
     Dosage: 6000 MG, ONCE/SINGLE
     Route: 048
     Dates: start: 20060425, end: 20060425
  2. ALEVIATIN [Concomitant]
     Dosage: 300 MG/DAY
     Route: 048

REACTIONS (8)
  - BLOOD PHOSPHORUS [None]
  - DEPRESSED LEVEL OF CONSCIOUSNESS [None]
  - DRUG LEVEL INCREASED [None]
  - HYPOKALAEMIA [None]
  - HYPOMAGNESAEMIA [None]
  - HYPONATRAEMIA [None]
  - OVERDOSE [None]
  - VENTRICULAR FIBRILLATION [None]
